FAERS Safety Report 17201150 (Version 2)
Quarter: 2020Q1

REPORT INFORMATION
  Report Type: Spontaneous
  Country: TR (occurrence: TR)
  Receive Date: 20191226
  Receipt Date: 20200210
  Transmission Date: 20200409
  Serious: No
  Sender: FDA-Public Use
  Company Number: TR-GLAXOSMITHKLINE-TR2019229445

PATIENT
  Sex: Female

DRUGS (2)
  1. LAMICTAL [Suspect]
     Active Substance: LAMOTRIGINE
     Indication: EPILEPSY
     Dosage: 75 MG, BID
  2. LAMICTAL [Suspect]
     Active Substance: LAMOTRIGINE
     Dosage: 100 MG, BID

REACTIONS (10)
  - Drug ineffective [Not Recovered/Not Resolved]
  - Hirsutism [Recovered/Resolved]
  - Metrorrhagia [Recovered/Resolved]
  - Weight decreased [Recovered/Resolved]
  - Menstruation irregular [Not Recovered/Not Resolved]
  - Feeling abnormal [Recovered/Resolved]
  - Alopecia [Recovering/Resolving]
  - Breast atrophy [Not Recovered/Not Resolved]
  - Increased appetite [Unknown]
  - Memory impairment [Unknown]
